FAERS Safety Report 9276386 (Version 1)
Quarter: 2013Q2

REPORT INFORMATION
  Report Type: Spontaneous
  Country: IT (occurrence: IT)
  Receive Date: 20130507
  Receipt Date: 20130507
  Transmission Date: 20140414
  Serious: Yes (Disabling)
  Sender: FDA-Public Use
  Company Number: PHHY2013IT043576

PATIENT
  Age: 67 Year
  Sex: Female

DRUGS (15)
  1. ZOMETA [Suspect]
     Indication: BREAST CANCER
     Dosage: 4 MG, CYCLIC
     Route: 042
     Dates: start: 20110127
  2. ZOMETA [Suspect]
     Dosage: 4 MG, CYCLIC
     Route: 042
     Dates: start: 201201, end: 20120331
  3. DIFOSFONAL [Suspect]
     Indication: BREAST CANCER
     Dosage: UNK UKN, UNK
     Route: 030
     Dates: start: 20070101, end: 20100201
  4. FULVESTRANT [Concomitant]
     Dosage: UNK UKN, UNK
     Dates: start: 201201, end: 201301
  5. MYOCET [Concomitant]
     Dosage: 25 MG/M2, UNK
  6. GEMZAR [Concomitant]
     Dosage: 1000 MG/M2, UNK
     Dates: start: 20110113, end: 20111027
  7. GARDENALE [Concomitant]
     Dosage: UNK UKN, UNK
     Dates: start: 200108
  8. ASCRIPTIN [Concomitant]
     Dosage: UNK UKN, UNK
     Dates: start: 200108
  9. ISOPTIN [Concomitant]
     Dosage: UNK UKN, UNK
     Dates: start: 200108
  10. LIBRADIN [Concomitant]
     Dosage: UNK UKN, UNK
     Dates: start: 2001
  11. LANTUS [Concomitant]
     Dosage: UNK UKN, UNK
     Dates: start: 201207
  12. NOVONORM [Concomitant]
     Dosage: UNK UKN, UNK
     Dates: start: 2001, end: 2012
  13. PEPTAZOL [Concomitant]
     Dosage: 1 DF, UNK
  14. TORVAST [Concomitant]
     Dosage: 1 DF, UNK
  15. EXEMESTANE [Concomitant]
     Dosage: UNK UKN, UNK
     Dates: start: 201110

REACTIONS (4)
  - Osteonecrosis [Recovering/Resolving]
  - Exposed bone in jaw [Unknown]
  - Purulent discharge [Unknown]
  - Pain [Unknown]
